FAERS Safety Report 13057171 (Version 1)
Quarter: 2016Q4

REPORT INFORMATION
  Report Type: Report from Study
  Country: PT (occurrence: PT)
  Receive Date: 20161222
  Receipt Date: 20161222
  Transmission Date: 20170207
  Serious: Yes (Hospitalization, Other)
  Sender: FDA-Public Use
  Company Number: PHHY2013PT087308

PATIENT
  Age: 46 Year
  Sex: Female

DRUGS (9)
  1. ATARAX [Concomitant]
     Active Substance: HYDROXYZINE\HYDROXYZINE HYDROCHLORIDE
     Indication: PRODUCT USED FOR UNKNOWN INDICATION
     Dosage: UNK
     Route: 065
  2. GILENYA [Suspect]
     Active Substance: FINGOLIMOD HYDROCHLORIDE
     Indication: MULTIPLE SCLEROSIS
     Dosage: 0.5 MG, QD
     Route: 048
     Dates: start: 20120410
  3. FAMPYRA [Concomitant]
     Active Substance: DALFAMPRIDINE
     Indication: PRODUCT USED FOR UNKNOWN INDICATION
     Dosage: UNK
     Route: 065
     Dates: end: 20161210
  4. ACUTIL [Concomitant]
     Indication: PRODUCT USED FOR UNKNOWN INDICATION
     Route: 065
  5. VITAMIN D [Concomitant]
     Active Substance: CHOLECALCIFEROL
     Indication: PRODUCT USED FOR UNKNOWN INDICATION
     Dosage: UNK
     Route: 065
  6. FAMPYRA [Concomitant]
     Active Substance: DALFAMPRIDINE
     Dosage: UNK
     Route: 065
     Dates: start: 20161211
  7. SIRDALUD [Concomitant]
     Active Substance: TIZANIDINE
     Dosage: UNK
     Route: 065
     Dates: start: 20161211
  8. INEGY [Concomitant]
     Active Substance: EZETIMIBE\SIMVASTATIN
     Indication: PRODUCT USED FOR UNKNOWN INDICATION
     Route: 065
  9. SIRDALUD [Concomitant]
     Active Substance: TIZANIDINE
     Indication: PRODUCT USED FOR UNKNOWN INDICATION
     Dosage: UNK
     Route: 065
     Dates: end: 20161210

REACTIONS (18)
  - Oropharyngeal pain [Not Recovered/Not Resolved]
  - Monoparesis [Not Recovered/Not Resolved]
  - Depressed mood [Recovered/Resolved]
  - Gait disturbance [Not Recovered/Not Resolved]
  - Sensory loss [Unknown]
  - Multiple sclerosis relapse [Recovered/Resolved]
  - Crying [Recovered/Resolved]
  - Cough [Not Recovered/Not Resolved]
  - Alopecia [Recovered/Resolved]
  - Syncope [Recovered/Resolved]
  - Mobility decreased [Not Recovered/Not Resolved]
  - Hypoaesthesia [Recovered/Resolved]
  - Inflammation [Unknown]
  - Depression [Recovered/Resolved]
  - Hypotension [Recovered/Resolved]
  - Pharyngitis [Recovering/Resolving]
  - Pyrexia [Recovered/Resolved]
  - Muscular weakness [Recovered/Resolved]

NARRATIVE: CASE EVENT DATE: 201307
